FAERS Safety Report 23839489 (Version 5)
Quarter: 2024Q4

REPORT INFORMATION
  Report Type: Report from Study
  Country: CA (occurrence: CA)
  Receive Date: 20240510
  Receipt Date: 20241212
  Transmission Date: 20250114
  Serious: Yes (Hospitalization, Other)
  Sender: ALEXION PHARMACEUTICALS
  Company Number: 2024A008281

PATIENT

DRUGS (4)
  1. ACALABRUTINIB [Suspect]
     Active Substance: ACALABRUTINIB
     Indication: Chronic lymphocytic leukaemia
     Dosage: 100 MILLIGRAM, Q12H
  2. ACALABRUTINIB [Suspect]
     Active Substance: ACALABRUTINIB
     Dosage: 100 MILLIGRAM, Q12H
     Route: 048
  3. ACALABRUTINIB [Suspect]
     Active Substance: ACALABRUTINIB
     Dosage: 100 MILLIGRAM, Q12H
  4. ACALABRUTINIB [Suspect]
     Active Substance: ACALABRUTINIB
     Dosage: 100 MILLIGRAM, Q12H
     Route: 048

REACTIONS (6)
  - Fall [Unknown]
  - Vascular rupture [Unknown]
  - Upper gastrointestinal haemorrhage [Unknown]
  - Stomach mass [Unknown]
  - Haemorrhage [Unknown]
  - Neck mass [Unknown]
